FAERS Safety Report 9911283 (Version 1)
Quarter: 2014Q1

REPORT INFORMATION
  Report Type: Report from Study
  Country: CN (occurrence: CN)
  Receive Date: 20140219
  Receipt Date: 20140219
  Transmission Date: 20141002
  Serious: Yes (Other)
  Sender: FDA-Public Use
  Company Number: CN-BAXTER-2014BAX008501

PATIENT
  Sex: Female

DRUGS (6)
  1. HOLOXAN [Suspect]
     Indication: OVARIAN CANCER
     Dosage: 3-4 G/M2 OVER 3 HOURS
     Route: 041
  2. UROMITEXAN [Suspect]
     Indication: OVARIAN CANCER
     Dosage: 0.8 G/M2 AT 0,4 AND 8 HOURS AFTER CHEMOTHERAPY
     Route: 042
  3. DEXAMETHASONE [Suspect]
     Indication: PRODUCT USED FOR UNKNOWN INDICATION
     Route: 065
  4. ONDANSETRON [Suspect]
     Indication: PRODUCT USED FOR UNKNOWN INDICATION
     Route: 065
  5. EPIRUBICIN [Suspect]
     Indication: OVARIAN CANCER
     Dosage: 50-60 MG/M2
     Route: 041
  6. OXALIPLATIN [Suspect]
     Indication: OVARIAN CANCER
     Dosage: OVER 2 HOURS
     Route: 040

REACTIONS (2)
  - Pollakiuria [Unknown]
  - Urinary incontinence [Unknown]
